FAERS Safety Report 25139024 (Version 1)
Quarter: 2025Q1

REPORT INFORMATION
  Report Type: Spontaneous
  Country: US (occurrence: US)
  Receive Date: 20250331
  Receipt Date: 20250331
  Transmission Date: 20250409
  Serious: No
  Sender: ROCHE
  Company Number: US-ROCHE-10000239932

PATIENT
  Sex: Female

DRUGS (2)
  1. ACTEMRA [Suspect]
     Active Substance: TOCILIZUMAB
     Indication: Rheumatoid arthritis
     Dosage: ONE 200 MG VIAL AND ONE 80 MG VIAL
     Route: 042
     Dates: start: 202502
  2. ACTEMRA [Suspect]
     Active Substance: TOCILIZUMAB
     Indication: Psoriatic arthropathy

REACTIONS (3)
  - Diarrhoea [Unknown]
  - Arthralgia [Unknown]
  - Inflammation [Unknown]
